FAERS Safety Report 8557036-9 (Version None)
Quarter: 2012Q3

REPORT INFORMATION
  Report Type: 
  Country: None (occurrence: None)
  Receive Date: 20120801
  Receipt Date: 20120724
  Transmission Date: 20120928
  Serious: Yes (Hospitalization)
  Sender: FDA-Public Use
  Company Number: US-JNJFOC-20120712514

PATIENT
  Sex: Female
  Weight: 69.4 kg

DRUGS (4)
  1. LEVAQUIN [Suspect]
     Indication: DIVERTICULITIS
     Route: 042
     Dates: start: 20120607, end: 20120607
  2. URSODIOL [Concomitant]
     Indication: LIVER DISORDER
     Route: 048
     Dates: start: 20070101
  3. VALTRAN [Concomitant]
     Indication: HYPERTENSION
     Route: 048
     Dates: start: 20110101
  4. UNKNOWN MEDICATION [Concomitant]
     Route: 065

REACTIONS (4)
  - INFUSION RELATED REACTION [None]
  - DRUG PRESCRIBING ERROR [None]
  - LOSS OF CONSCIOUSNESS [None]
  - HYPERSENSITIVITY [None]
